FAERS Safety Report 5977291-9 (Version None)
Quarter: 2008Q4

REPORT INFORMATION
  Report Type: 
  Country: None (occurrence: None)
  Receive Date: 20081201
  Receipt Date: 20081201
  Transmission Date: 20090506
  Serious: Yes (Life-Threatening, Hospitalization)
  Sender: FDA-Public Use
  Company Number: None

PATIENT
  Age: 35 Year
  Sex: Female
  Weight: 52.1637 kg

DRUGS (1)
  1. ABILIFY [Suspect]
     Indication: MAJOR DEPRESSION
     Dosage: 5MG ONCE DAILY PO
     Route: 048
     Dates: start: 20081021, end: 20081124

REACTIONS (5)
  - CONVULSION [None]
  - FEELING ABNORMAL [None]
  - INJURY [None]
  - MEMORY IMPAIRMENT [None]
  - PERIORBITAL HAEMATOMA [None]
